FAERS Safety Report 6032260-8 (Version None)
Quarter: 2009Q1

REPORT INFORMATION
  Report Type: 
  Country: None (occurrence: None)
  Receive Date: 20090102
  Receipt Date: 20081222
  Transmission Date: 20090719
  Serious: Yes (Other)
  Sender: FDA-Public Use
  Company Number: 200814480

PATIENT
  Age: 13 Year

DRUGS (1)
  1. VIVAGLOBIN [Suspect]
     Dosage: SC
     Route: 058

REACTIONS (3)
  - CATHETER SITE INFECTION [None]
  - CATHETER SITE SWELLING [None]
  - PYREXIA [None]
